FAERS Safety Report 6145974-6 (Version None)
Quarter: 2009Q2

REPORT INFORMATION
  Report Type: 
  Country: None (occurrence: None)
  Receive Date: 20090407
  Receipt Date: 20090330
  Transmission Date: 20091009
  Serious: Yes (Hospitalization)
  Sender: FDA-Public Use
  Company Number: JP-ASTRAZENECA-2008AP09356

PATIENT
  Age: 32 Year
  Sex: Female
  Weight: 70 kg

DRUGS (5)
  1. ANAPEINE [Suspect]
     Indication: EPIDURAL ANAESTHESIA
     Dosage: DILUTED BY 0.2% AND ADMINISTERED AT 7.5MG/DAY FOR 2 DAYS.
     Route: 008
     Dates: start: 20081128, end: 20081130
  2. MARCAINE [Suspect]
     Indication: SPINAL ANAESTHESIA
     Route: 029
     Dates: start: 20081128, end: 20081128
  3. MORPHINE HYDROCHLORIDE [Concomitant]
     Indication: EPIDURAL ANAESTHESIA
     Route: 008
     Dates: start: 20081128, end: 20081128
  4. MORPHINE HYDROCHLORIDE [Concomitant]
     Route: 008
     Dates: start: 20081128, end: 20081130
  5. EPHEDRINE HYDROCHLORIDE [Concomitant]
     Indication: BLOOD PRESSURE DECREASED
     Dosage: A TOTAL OF 44 MG (11 TIMES/DAY).
     Route: 042
     Dates: start: 20081128, end: 20081128

REACTIONS (3)
  - BLOOD PRESSURE DECREASED [None]
  - MUSCULAR WEAKNESS [None]
  - SENSORY DISTURBANCE [None]
